FAERS Safety Report 7920512-3 (Version None)
Quarter: 2011Q4

REPORT INFORMATION
  Report Type: 
  Country: None (occurrence: None)
  Receive Date: 20111117
  Receipt Date: 20111110
  Transmission Date: 20120403
  Serious: Yes (Disabling, Other)
  Sender: FDA-Public Use
  Company Number: PHHY2011US49239

PATIENT
  Sex: Female

DRUGS (1)
  1. GILENYA [Suspect]
     Indication: MULTIPLE SCLEROSIS
     Dosage: 0.5 MG, DAILY
     Route: 048
     Dates: start: 20110401, end: 20110913

REACTIONS (4)
  - NAUSEA [None]
  - VISUAL ACUITY REDUCED [None]
  - EYE INFECTION TOXOPLASMAL [None]
  - CD4 LYMPHOCYTES DECREASED [None]
